FAERS Safety Report 9025524 (Version 6)
Quarter: 2013Q4

REPORT INFORMATION
  Report Type: Spontaneous
  Country: US (occurrence: US)
  Receive Date: 20130122
  Receipt Date: 20131007
  Transmission Date: 20140711
  Serious: Yes (Other)
  Sender: FDA-Public Use
  Company Number: US-JNJFOC-20121102207

PATIENT
  Sex: Female

DRUGS (9)
  1. TOPAMAX [Suspect]
     Indication: BIPOLAR DISORDER
     Route: 048
     Dates: start: 20080110, end: 20081008
  2. AZITHROMYCIN [Suspect]
     Indication: INFECTION
     Route: 048
  3. MEDROL DOSE PACK [Suspect]
     Indication: RASH
     Route: 065
  4. TYLENOL [Suspect]
     Indication: CHILLS
     Route: 065
  5. TYLENOL [Suspect]
     Indication: VOMITING
     Route: 065
  6. TYLENOL [Suspect]
     Indication: DIARRHOEA
     Route: 065
  7. PHENERGAN [Suspect]
     Indication: CHILLS
     Route: 065
  8. PHENERGAN [Suspect]
     Indication: VOMITING
     Route: 065
  9. PHENERGAN [Suspect]
     Indication: DIARRHOEA
     Route: 065

REACTIONS (9)
  - Pulmonary arterial hypertension [Unknown]
  - Foetal death [Recovered/Resolved]
  - Exposure during pregnancy [Recovered/Resolved]
  - Depression [Unknown]
  - Hypertension [Unknown]
  - Arrested labour [Recovered/Resolved]
  - Umbilical cord abnormality [Unknown]
  - Stress [Unknown]
  - Rash pruritic [Unknown]
